FAERS Safety Report 5324764-8 (Version None)
Quarter: 2007Q2

REPORT INFORMATION
  Report Type: 
  Country: None (occurrence: None)
  Receive Date: 20070515
  Receipt Date: 20070508
  Transmission Date: 20071010
  Serious: Yes (Other)
  Sender: FDA-Public Use
  Company Number: PHBS2007ES07732

PATIENT
  Age: 68 Year
  Sex: Male

DRUGS (4)
  1. ZOMETA [Suspect]
     Indication: CALCIUM METABOLISM DISORDER
     Dosage: 4 MG, QW4
     Route: 042
     Dates: start: 20030101, end: 20070201
  2. VELCADE [Concomitant]
     Indication: MULTIPLE MYELOMA
     Dosage: 1.7 MG, QW4
     Route: 042
     Dates: start: 20050101, end: 20070201
  3. FORTECORTIN [Concomitant]
     Indication: MULTIPLE MYELOMA
     Dosage: 40 MG, QW4
     Route: 042
     Dates: start: 20050101, end: 20070201
  4. MELPHALAN [Concomitant]
     Indication: MULTIPLE MYELOMA
     Route: 048
     Dates: start: 20030101, end: 20070201

REACTIONS (1)
  - OSTEONECROSIS [None]
